FAERS Safety Report 8244689-8 (Version None)
Quarter: 2012Q1

REPORT INFORMATION
  Report Type: 
  Country: None (occurrence: None)
  Receive Date: 20120329
  Receipt Date: 20120127
  Transmission Date: 20120608
  Serious: No
  Sender: FDA-Public Use
  Company Number: US-MYLANLABS-2012S1002236

PATIENT
  Age: 56 Year
  Sex: Male

DRUGS (1)
  1. FENTANYL-100 [Suspect]
     Indication: NEUROPATHY PERIPHERAL
     Dosage: CHANGED Q72H
     Route: 062
     Dates: start: 20080101

REACTIONS (4)
  - FAECAL INCONTINENCE [None]
  - GENITAL HYPOAESTHESIA [None]
  - DIARRHOEA [None]
  - HYPOAESTHESIA [None]
